FAERS Safety Report 14315667 (Version 2)
Quarter: 2018Q1

REPORT INFORMATION
  Report Type: Spontaneous
  Country: DE (occurrence: DE)
  Receive Date: 20171221
  Receipt Date: 20180206
  Transmission Date: 20180509
  Serious: Yes (Other)
  Sender: FDA-Public Use
  Company Number: DE-BAUSCH-BL-2017-034273

PATIENT
  Sex: Female
  Weight: 58 kg

DRUGS (3)
  1. CROM-OPHTAL SINE [Suspect]
     Active Substance: CROMOLYN SODIUM
     Indication: PRODUCT USED FOR UNKNOWN INDICATION
     Dosage: STARTED A LONG TIME AGO WHERE THERE WERE NO METHOCEL IN THE DROPS;?AS NEEDED (NO REGULAR USE),1 DROP
     Route: 065
  2. CROM-OPHTAL SINE [Suspect]
     Active Substance: CROMOLYN SODIUM
     Dosage: AS NEEDED (NO REGULAR USE)?1 DROPS PER EYE MORE OR LESS
     Route: 065
     Dates: start: 2014
  3. CROM-OPHTAL SINE [Suspect]
     Active Substance: CROMOLYN SODIUM
     Dosage: 1 DROPS PER EYE MORE OR LESS, AS NEEDED (NO REGULAR USE)
     Route: 065
     Dates: start: 201711, end: 20171206

REACTIONS (8)
  - Eye irritation [Recovered/Resolved]
  - Anxiety [Recovered/Resolved]
  - Nausea [Recovered/Resolved]
  - Pain in extremity [Recovered/Resolved]
  - Rash [Recovered/Resolved]
  - Bronchospasm [Recovered/Resolved]
  - Back pain [Recovered/Resolved]
  - Anaphylactic shock [Recovered/Resolved]
